FAERS Safety Report 16038633 (Version 1)
Quarter: 2019Q1

REPORT INFORMATION
  Report Type: Spontaneous
  Country: US (occurrence: US)
  Receive Date: 20190305
  Receipt Date: 20190305
  Transmission Date: 20190418
  Serious: No
  Sender: FDA-Public Use
  Company Number: US-BAUSCH-BL-2018-015331

PATIENT
  Age: 12 Year
  Sex: Female

DRUGS (2)
  1. XIFAXAN [Suspect]
     Active Substance: RIFAXIMIN
     Indication: GASTROINTESTINAL BACTERIAL OVERGROWTH
     Dosage: DISPENSED ON 16/MAY/2018
     Route: 048
     Dates: start: 201805
  2. XIFAXAN [Suspect]
     Active Substance: RIFAXIMIN
     Indication: PRODUCT USE IN UNAPPROVED INDICATION

REACTIONS (3)
  - Product size issue [Unknown]
  - Product use in unapproved indication [Unknown]
  - Product use complaint [Unknown]

NARRATIVE: CASE EVENT DATE: 201805
